FAERS Safety Report 26064080 (Version 2)
Quarter: 2025Q4

REPORT INFORMATION
  Report Type: Spontaneous
  Country: EU (occurrence: EU)
  Receive Date: 20251119
  Receipt Date: 20251202
  Transmission Date: 20260118
  Serious: Yes (Other)
  Sender: TEVA
  Company Number: EU-TEVA-VS-3393004

PATIENT
  Sex: Female

DRUGS (7)
  1. MYCOPHENOLATE MOFETIL [Suspect]
     Active Substance: MYCOPHENOLATE MOFETIL
     Indication: Immune-mediated hepatitis
     Route: 065
     Dates: start: 2025
  2. NIVOLUMAB [Suspect]
     Active Substance: NIVOLUMAB
     Indication: Vulval cancer
     Route: 065
     Dates: end: 20250305
  3. METHYLPREDNISOLONE [Suspect]
     Active Substance: METHYLPREDNISOLONE
     Indication: Immune-mediated hepatitis
     Dosage: HIGH DOSE
     Route: 042
     Dates: start: 20250514
  4. METHYLPREDNISOLONE [Suspect]
     Active Substance: METHYLPREDNISOLONE
     Indication: Immune-mediated hepatitis
     Dosage: HIGH DOSE; FURTHER TAPERED TO 32MG PER DAY
     Route: 042
  5. PEMBROLIZUMAB [Suspect]
     Active Substance: PEMBROLIZUMAB
     Indication: Vulval cancer
     Route: 065
  6. TACROLIMUS [Suspect]
     Active Substance: TACROLIMUS
     Indication: Immune-mediated hepatitis
     Dosage: TARGET LEVEL OF 7-8 ?G/L
     Route: 065
     Dates: start: 20250523
  7. IPILIMUMAB [Suspect]
     Active Substance: IPILIMUMAB
     Indication: Vulval cancer
     Route: 065
     Dates: end: 20250305

REACTIONS (5)
  - Acute kidney injury [Recovering/Resolving]
  - Toxicity to various agents [Recovering/Resolving]
  - Immune-mediated hepatitis [Recovered/Resolved]
  - Drug ineffective [Unknown]
  - Oral disorder [Unknown]

NARRATIVE: CASE EVENT DATE: 20250101
